FAERS Safety Report 9250238 (Version 3)
Quarter: 2013Q4

REPORT INFORMATION
  Report Type: Spontaneous
  Country: US (occurrence: US)
  Receive Date: 20130424
  Receipt Date: 20131001
  Transmission Date: 20140711
  Serious: Yes (Hospitalization)
  Sender: FDA-Public Use
  Company Number: US-ASTRAZENECA-2013SE27343

PATIENT
  Age: 40 Year
  Sex: Male
  Weight: 106.1 kg

DRUGS (14)
  1. NEXIUM [Suspect]
     Indication: GASTROOESOPHAGEAL REFLUX DISEASE
     Route: 048
     Dates: start: 201009
  2. NEXIUM [Suspect]
     Indication: CHOLELITHIASIS
     Route: 048
     Dates: start: 201009
  3. CONCERTA [Concomitant]
  4. ASPIRIN [Concomitant]
     Indication: THROMBOSIS PROPHYLAXIS
  5. OXYCODONE [Concomitant]
     Indication: INTERVERTEBRAL DISC PROTRUSION
  6. OFLOXACIN [Concomitant]
     Indication: EAR INFECTION
  7. AZITHROMYCIN [Concomitant]
  8. CEPHALEXIN [Concomitant]
  9. FISH OIL [Concomitant]
  10. HYDROCODONE/ACETAMINOPHEN [Concomitant]
     Dosage: 7.5-500 T TAKE 1 TABLET BY MOUTH EVERY FOUR HOURS
  11. METHYLPHENIDATE [Concomitant]
  12. PREDNISONE [Concomitant]
  13. LEVOFLOXACIN [Concomitant]
  14. GLIPIZIDE [Concomitant]
     Indication: BLOOD GLUCOSE INCREASED
     Dosage: 5 MG HALF OF ONE

REACTIONS (16)
  - Pneumonia [Unknown]
  - Bronchitis [Unknown]
  - Electrocardiogram abnormal [Unknown]
  - Osteoporosis [Unknown]
  - Bone disorder [Unknown]
  - Foot fracture [Unknown]
  - Vitamin B12 deficiency [Unknown]
  - Nicotinamide decreased [Unknown]
  - Fall [Unknown]
  - Sleep disorder [Unknown]
  - Cataract [Unknown]
  - Vitamin D deficiency [Unknown]
  - Limb injury [Unknown]
  - Accident at work [Unknown]
  - Sinusitis [Unknown]
  - Depression [Unknown]
